FAERS Safety Report 10700786 (Version 1)
Quarter: 2014Q4

REPORT INFORMATION
  Report Type: Spontaneous
  Country: US (occurrence: None)
  Receive Date: 20141224
  Receipt Date: 20141224
  Transmission Date: 20150529
  Serious: Yes (Hospitalization)
  Sender: FDA-Public Use
  Company Number: PHEH2014US009125

PATIENT
  Age: 42 Year
  Sex: Female
  Weight: 150 kg

DRUGS (5)
  1. DEPAKOTE [Concomitant]
     Active Substance: DIVALPROEX SODIUM
  2. CLOZARIL [Suspect]
     Active Substance: CLOZAPINE
     Indication: PSYCHOTIC DISORDER
     Dosage: 300MG (50MG MORNING AND 250 MG QHS) ORAL
     Route: 048
     Dates: start: 20130520
  3. PHENYTOIN (PHENYTOIN) [Concomitant]
     Active Substance: PHENYTOIN
  4. RISPERDAL CONSTA [Concomitant]
     Active Substance: RISPERIDONE
  5. HYDROXYZINE (HYDROXYZINE) [Concomitant]
     Active Substance: HYDROXYZINE HYDROCHLORIDE

REACTIONS (2)
  - Neutropenia [None]
  - White blood cell count decreased [None]

NARRATIVE: CASE EVENT DATE: 20140424
